FAERS Safety Report 7429795-X (Version None)
Quarter: 2011Q2

REPORT INFORMATION
  Report Type: 
  Country: None (occurrence: None)
  Receive Date: 20110421
  Receipt Date: 20110415
  Transmission Date: 20111010
  Serious: Yes (Other)
  Sender: FDA-Public Use
  Company Number: FR-MERCK-1104FRA00096

PATIENT
  Age: 62 Year
  Sex: Male

DRUGS (2)
  1. PRIMAXIN [Suspect]
     Indication: DEVICE RELATED INFECTION
     Route: 042
     Dates: start: 20101117, end: 20101126
  2. VANCOMYCIN [Suspect]
     Indication: DEVICE RELATED INFECTION
     Route: 042
     Dates: start: 20101117, end: 20101126

REACTIONS (1)
  - OROPHARYNGEAL CANDIDIASIS [None]
